FAERS Safety Report 7740094-9 (Version None)
Quarter: 2011Q3

REPORT INFORMATION
  Report Type: 
  Country: None (occurrence: None)
  Receive Date: 20110909
  Receipt Date: 20110415
  Transmission Date: 20111222
  Serious: No
  Sender: FDA-Public Use
  Company Number: US-BAYER-US-2006-002324

PATIENT
  Age: 37 Year
  Sex: Female

DRUGS (2)
  1. MIRENA [Suspect]
     Dosage: 20 MCG/24HR, CONT
     Route: 015
     Dates: start: 20110411
  2. MIRENA [Suspect]
     Indication: CONTRACEPTION
     Dosage: 20 ?G/DAY, CONT
     Route: 015
     Dates: start: 20060203

REACTIONS (3)
  - MEDICAL DEVICE COMPLICATION [None]
  - ABDOMINAL PAIN LOWER [None]
  - MENOMETRORRHAGIA [None]
